FAERS Safety Report 7133865-3 (Version None)
Quarter: 2010Q4

REPORT INFORMATION
  Report Type: 
  Country: None (occurrence: None)
  Receive Date: 20101203
  Receipt Date: 20101124
  Transmission Date: 20110411
  Serious: Yes (Other)
  Sender: FDA-Public Use
  Company Number: BR-PFIZER INC-2008010543

PATIENT
  Age: 77 Year
  Sex: Female
  Weight: 54 kg

DRUGS (1)
  1. XALATAN [Suspect]
     Indication: GLAUCOMA
     Dosage: 3 UG, ONE DROP IN EACH EYE, UNSPECIFIED FREQUENCY
     Route: 047
     Dates: start: 20070101

REACTIONS (3)
  - CATARACT [None]
  - EYE IRRITATION [None]
  - MEDICATION ERROR [None]
